FAERS Safety Report 7502747-7 (Version None)
Quarter: 2011Q2

REPORT INFORMATION
  Report Type: 
  Country: None (occurrence: None)
  Receive Date: 20110525
  Receipt Date: 20110520
  Transmission Date: 20111010
  Serious: Yes (Other)
  Sender: FDA-Public Use
  Company Number: IT-PFIZER INC-2011109728

PATIENT
  Age: 63 Year
  Sex: Female

DRUGS (1)
  1. SUTENT [Suspect]
     Indication: RENAL CANCER
     Dosage: 37.5 MG (25 MG + 12.5 MG), 1X/DAY
     Route: 048
     Dates: start: 20110128, end: 20110327

REACTIONS (5)
  - HAEMOLYSIS [None]
  - THROMBOCYTOPENIA [None]
  - COUGH [None]
  - STOMATITIS [None]
  - LIVER FUNCTION TEST ABNORMAL [None]
